FAERS Safety Report 14884458 (Version 1)
Quarter: 2018Q2

REPORT INFORMATION
  Report Type: Spontaneous
  Country: US (occurrence: US)
  Receive Date: 20180511
  Receipt Date: 20180511
  Transmission Date: 20180711
  Serious: Yes (Hospitalization)
  Sender: FDA-Public Use
  Company Number: US-SA-2018SA127431

PATIENT
  Sex: Male

DRUGS (1)
  1. ASPERCREME WITH LIDOCAINE [Suspect]
     Active Substance: LIDOCAINE
     Route: 051

REACTIONS (3)
  - Ill-defined disorder [Unknown]
  - Movement disorder [Unknown]
  - Tremor [Unknown]

NARRATIVE: CASE EVENT DATE: 20180420
